FAERS Safety Report 9778828 (Version 6)
Quarter: 2014Q4

REPORT INFORMATION
  Report Type: Report from Study
  Country: SK (occurrence: SK)
  Receive Date: 20131223
  Receipt Date: 20141103
  Transmission Date: 20150529
  Serious: Yes (Hospitalization)
  Sender: FDA-Public Use
  Company Number: SK-PFIZER INC-2013347223

PATIENT
  Age: 20 Year
  Sex: Female
  Weight: 72 kg

DRUGS (6)
  1. HYDROCORTISON [Concomitant]
     Active Substance: HYDROCORTISONE
     Indication: TONSILLECTOMY
     Dosage: UNK
     Route: 042
     Dates: start: 20131024, end: 20131105
  2. DITHIADEN [Concomitant]
     Active Substance: BISULEPIN
     Indication: TONSILLECTOMY
     Dosage: UNK
     Route: 030
     Dates: start: 20131024, end: 20131105
  3. V-PENICILLIN [Concomitant]
     Indication: TONSILLECTOMY
     Dosage: 750 MG, UNK
     Route: 048
     Dates: start: 20131024, end: 20131105
  4. TOFACITINIB CITRATE [Suspect]
     Active Substance: TOFACITINIB CITRATE
     Indication: PSORIASIS
     Dosage: 10 MG, 2X/DAY
     Route: 048
     Dates: start: 20121206, end: 20131103
  5. ALGIFEN NEO [Concomitant]
     Indication: TONSILLECTOMY
     Dosage: UNK
     Route: 048
     Dates: start: 20131024, end: 20131105
  6. NOVALGIN [Concomitant]
     Active Substance: METAMIZOLE SODIUM
     Indication: TONSILLECTOMY
     Dosage: 500 MG, UNK
     Route: 030
     Dates: start: 20131024, end: 20131105

REACTIONS (1)
  - B-cell lymphoma [Recovered/Resolved with Sequelae]

NARRATIVE: CASE EVENT DATE: 20131024
